FAERS Safety Report 22528506 (Version 2)
Quarter: 2023Q2

REPORT INFORMATION
  Report Type: Spontaneous
  Country: TR (occurrence: TR)
  Receive Date: 20230607
  Receipt Date: 20230621
  Transmission Date: 20230722
  Serious: Yes (Life-Threatening, Hospitalization, Other)
  Sender: FDA-Public Use
  Company Number: TR-KOREA IPSEN Pharma-2023-13600

PATIENT
  Age: 34 Year
  Sex: Female
  Weight: 64 kg

DRUGS (3)
  1. DYSPORT [Suspect]
     Active Substance: ABOBOTULINUMTOXINA
     Indication: Hyperhidrosis
     Route: 065
     Dates: start: 20230506, end: 20230506
  2. DYSPORT [Suspect]
     Active Substance: ABOBOTULINUMTOXINA
     Indication: Off label use
  3. BOTULINUM TOXIN TYPE A [Suspect]
     Active Substance: BOTULINUM TOXIN TYPE A
     Indication: Skin odour abnormal
     Route: 065
     Dates: start: 20230506, end: 20230506

REACTIONS (11)
  - Asthenia [Recovering/Resolving]
  - Nausea [Recovering/Resolving]
  - Muscular weakness [Recovering/Resolving]
  - Dyspnoea [Recovering/Resolving]
  - Palpitations [Recovering/Resolving]
  - Somnolence [Recovering/Resolving]
  - Diplopia [Recovering/Resolving]
  - Blepharospasm [Recovering/Resolving]
  - Dysphagia [Recovering/Resolving]
  - Neuromuscular toxicity [Recovering/Resolving]
  - Off label use [Unknown]

NARRATIVE: CASE EVENT DATE: 20230506
